FAERS Safety Report 12549376 (Version 1)
Quarter: 2016Q3

REPORT INFORMATION
  Report Type: Spontaneous
  Country: CN (occurrence: CN)
  Receive Date: 20160712
  Receipt Date: 20160712
  Transmission Date: 20161109
  Serious: Yes (Life-Threatening)
  Sender: FDA-Public Use
  Company Number: CN-SA-2016SA124021

PATIENT
  Age: 95 Year
  Sex: Female

DRUGS (5)
  1. CLEXANE [Suspect]
     Active Substance: ENOXAPARIN SODIUM
     Indication: ANTICOAGULANT THERAPY
     Route: 058
     Dates: start: 20151119, end: 20151123
  2. CINEPAZIDE MALEATE [Concomitant]
     Active Substance: CINEPAZIDE MALEATE
     Indication: CORONARY ARTERY DISEASE
     Route: 041
     Dates: start: 20151110, end: 20151121
  3. RABEPRAZOLE SODIUM. [Concomitant]
     Active Substance: RABEPRAZOLE SODIUM
     Indication: GASTRITIS
     Route: 048
     Dates: start: 20151103, end: 20151123
  4. ADENOSINE TRIPHOSPHATE, DISODIUM SALT [Concomitant]
     Indication: CORONARY ARTERY DISEASE
     Route: 041
     Dates: start: 20151110, end: 20151121
  5. MAGNESIUM CHLORIDE. [Concomitant]
     Active Substance: MAGNESIUM CHLORIDE
     Indication: CORONARY ARTERY DISEASE
     Route: 041
     Dates: start: 20151110, end: 20151121

REACTIONS (1)
  - Toxic epidermal necrolysis [Not Recovered/Not Resolved]

NARRATIVE: CASE EVENT DATE: 20151121
